FAERS Safety Report 12661562 (Version 1)
Quarter: 2016Q3

REPORT INFORMATION
  Report Type: Spontaneous
  Country: US (occurrence: US)
  Receive Date: 20160817
  Receipt Date: 20160817
  Transmission Date: 20161109
  Serious: No
  Sender: FDA-Public Use
  Company Number: US-PFIZER INC-2016383108

PATIENT
  Age: 69 Year
  Sex: Male

DRUGS (1)
  1. DILANTIN [Suspect]
     Active Substance: PHENYTOIN
     Indication: EPILEPSY
     Dosage: 200 MG, 2X/DAY (100 MG, TWO PILLS IN THE MORNING AND TWO PILLS AT NIGHT)
     Route: 048

REACTIONS (1)
  - Limb injury [Recovering/Resolving]

NARRATIVE: CASE EVENT DATE: 2001
